FAERS Safety Report 24215322 (Version 3)
Quarter: 2024Q3

REPORT INFORMATION
  Report Type: Spontaneous
  Country: US (occurrence: US)
  Receive Date: 20240816
  Receipt Date: 20240901
  Transmission Date: 20241017
  Serious: No
  Sender: Unknown Manufacturer
  Company Number: US-MTPC-MTDA2024-0017088

PATIENT
  Age: 69 Year
  Sex: Male

DRUGS (5)
  1. RADICAVA ORS [Suspect]
     Active Substance: EDARAVONE
     Indication: Amyotrophic lateral sclerosis
     Dosage: 5 MILLILITER, QD FOR 14 DAYS ON, 14 DAYS OFF
     Route: 048
     Dates: start: 20240802
  2. RADICAVA ORS [Suspect]
     Active Substance: EDARAVONE
     Indication: Amyotrophic lateral sclerosis
     Dosage: 5 MILLILITER, QD FOR 14 DAYS ON, 14 DAYS OFF
     Route: 048
     Dates: start: 20240802
  3. RADICAVA ORS [Suspect]
     Active Substance: EDARAVONE
     Dosage: 5 MILLILITER, QD FOR 14 DAYS ON, 14 DAYS OFF
     Route: 048
     Dates: start: 20240806, end: 20240810
  4. RADICAVA ORS [Suspect]
     Active Substance: EDARAVONE
     Dosage: 5 MILLILITER, QD FOR 14 DAYS ON, 14 DAYS OFF
     Route: 048
     Dates: start: 20240806, end: 20240810
  5. RILUZOLE [Concomitant]
     Active Substance: RILUZOLE
     Indication: Product used for unknown indication
     Route: 065

REACTIONS (16)
  - Malaise [Recovered/Resolved]
  - Gait disturbance [Recovered/Resolved]
  - Thirst [Recovered/Resolved]
  - Pollakiuria [Recovered/Resolved]
  - Muscular weakness [Recovered/Resolved]
  - Joint stiffness [Recovered/Resolved]
  - Dizziness [Recovered/Resolved]
  - Asthenia [Recovered/Resolved]
  - Myalgia [Recovered/Resolved]
  - Pain in extremity [Recovered/Resolved]
  - Musculoskeletal pain [Recovered/Resolved]
  - Muscle spasms [Recovered/Resolved]
  - Dehydration [Recovered/Resolved]
  - Dry mouth [Recovered/Resolved]
  - Insomnia [Recovered/Resolved]
  - Inappropriate schedule of product administration [Recovered/Resolved]

NARRATIVE: CASE EVENT DATE: 20240802
